FAERS Safety Report 9494186 (Version 1)
Quarter: 2013Q3

REPORT INFORMATION
  Report Type: Spontaneous
  Country: BR (occurrence: BR)
  Receive Date: 20130903
  Receipt Date: 20130903
  Transmission Date: 20140515
  Serious: Yes (Other)
  Sender: FDA-Public Use
  Company Number: BR-ACCORD-019177

PATIENT
  Age: 44 Year
  Sex: Female
  Weight: 54 kg

DRUGS (3)
  1. PACLITAXEL [Suspect]
     Indication: CHEMOTHERAPY
     Route: 042
     Dates: start: 20130801, end: 20130801
  2. DEXAMETHASONE [Concomitant]
     Route: 042
     Dates: start: 20130801, end: 20130801
  3. ONDANSETRON [Concomitant]
     Route: 042
     Dates: start: 20130801, end: 20130801

REACTIONS (3)
  - Respiratory distress [Recovered/Resolved]
  - Infusion site pain [Recovered/Resolved]
  - Cough [Recovered/Resolved]
